APPROVED DRUG PRODUCT: TOPIRAMATE
Active Ingredient: TOPIRAMATE
Strength: 15MG
Dosage Form/Route: CAPSULE;ORAL
Application: A217694 | Product #001 | TE Code: AB
Applicant: TWI PHARMACEUTICALS INC
Approved: Dec 5, 2023 | RLD: No | RS: No | Type: RX